FAERS Safety Report 5385483-5 (Version None)
Quarter: 2007Q3

REPORT INFORMATION
  Report Type: 
  Country: None (occurrence: None)
  Receive Date: 20070709
  Receipt Date: 20070626
  Transmission Date: 20080115
  Serious: Yes (Hospitalization, Other)
  Sender: FDA-Public Use
  Company Number: 38502

PATIENT
  Age: 76 Year
  Sex: Male

DRUGS (1)
  1. AMIODARONE HCL [Suspect]
     Indication: ATRIAL FIBRILLATION
     Dosage: 200MG/DAY

REACTIONS (4)
  - ILEUS [None]
  - METABOLIC DISORDER [None]
  - PRIMARY HYPOTHYROIDISM [None]
  - SMALL INTESTINAL OBSTRUCTION [None]
